FAERS Safety Report 16160555 (Version 2)
Quarter: 2019Q2

REPORT INFORMATION
  Report Type: Spontaneous
  Country: DE (occurrence: DE)
  Receive Date: 20190405
  Receipt Date: 20190511
  Transmission Date: 20190711
  Serious: Yes (Other)
  Sender: FDA-Public Use
  Company Number: DE-ROCHE-2296947

PATIENT
  Age: 47 Year
  Sex: Female

DRUGS (6)
  1. SATIVEX [Concomitant]
     Active Substance: NABIXIMOLS
     Route: 065
  2. RITUXIMAB. [Suspect]
     Active Substance: RITUXIMAB
     Indication: MULTIPLE SCLEROSIS
     Route: 042
     Dates: start: 2010
  3. DEKRISTOL [Concomitant]
     Active Substance: CHOLECALCIFEROL
     Route: 048
  4. VALDOXAN [Concomitant]
     Active Substance: AGOMELATINE
     Route: 048
  5. METFORMIN [Concomitant]
     Active Substance: METFORMIN HYDROCHLORIDE
     Route: 065
  6. NITROXOLINE [Concomitant]
     Active Substance: NITROXOLINE
     Route: 048

REACTIONS (4)
  - Cardiomyopathy [Unknown]
  - Off label use [Unknown]
  - Intentional product use issue [Unknown]
  - Electrocardiogram QT prolonged [Unknown]
